FAERS Safety Report 19299871 (Version 1)
Quarter: 2021Q2

REPORT INFORMATION
  Report Type: Spontaneous
  Country: US (occurrence: US)
  Receive Date: 20210524
  Receipt Date: 20210524
  Transmission Date: 20210717
  Serious: Yes (Life-Threatening, Hospitalization, Disabling)
  Sender: FDA-Public Use
  Company Number: None

PATIENT
  Age: 39 Year
  Sex: Female
  Weight: 116.55 kg

DRUGS (1)
  1. APRI [Suspect]
     Active Substance: DESOGESTREL\ETHINYL ESTRADIOL
     Indication: HEAVY MENSTRUAL BLEEDING
     Dosage: ?          QUANTITY:1 TABLET(S);?
     Route: 048
     Dates: start: 20201218, end: 20210522

REACTIONS (4)
  - Dyspnoea [None]
  - Pulmonary embolism [None]
  - Chest pain [None]
  - Troponin I increased [None]

NARRATIVE: CASE EVENT DATE: 20210522
